FAERS Safety Report 20082823 (Version 1)
Quarter: 2021Q4

REPORT INFORMATION
  Report Type: Spontaneous
  Country: KR (occurrence: KR)
  Receive Date: 20211117
  Receipt Date: 20211117
  Transmission Date: 20220303
  Serious: Yes (Other)
  Sender: FDA-Public Use
  Company Number: KR-ALXN-A202112359

PATIENT
  Age: 68 Year
  Sex: Male

DRUGS (2)
  1. SOLIRIS [Suspect]
     Active Substance: ECULIZUMAB
     Indication: Paroxysmal nocturnal haemoglobinuria
     Dosage: 600.0 MG , QW
     Route: 042
     Dates: start: 20210118, end: 20210208
  2. SOLIRIS [Suspect]
     Active Substance: ECULIZUMAB
     Dosage: 900.0 MG , Q2W
     Route: 042
     Dates: start: 20210215

REACTIONS (1)
  - Gastric cancer [Not Recovered/Not Resolved]

NARRATIVE: CASE EVENT DATE: 20210101
